FAERS Safety Report 16498989 (Version 3)
Quarter: 2019Q3

REPORT INFORMATION
  Report Type: Spontaneous
  Country: JP (occurrence: JP)
  Receive Date: 20190630
  Receipt Date: 20190729
  Transmission Date: 20191004
  Serious: Yes (Death)
  Sender: FDA-Public Use
  Company Number: JP-BEH-2019103722

PATIENT
  Age: 81 Year
  Sex: Male
  Weight: 72 kg

DRUGS (3)
  1. KCENTRA [Suspect]
     Active Substance: COAGULATION FACTOR IX HUMAN\COAGULATION FACTOR VII HUMAN\COAGULATION FACTOR X HUMAN\PROTEIN C\PROTEIN S HUMAN\PROTHROMBIN
     Indication: CEREBELLAR HAEMORRHAGE
     Dosage: 1800 INTERNATIONAL UNIT, SINGLE
     Route: 065
     Dates: start: 20181225, end: 20181225
  2. NICARDIPINE [Concomitant]
     Active Substance: NICARDIPINE
     Indication: CEREBELLAR HAEMORRHAGE
     Dosage: UNK
     Route: 065
     Dates: start: 20181225
  3. KCENTRA [Suspect]
     Active Substance: COAGULATION FACTOR IX HUMAN\COAGULATION FACTOR VII HUMAN\COAGULATION FACTOR X HUMAN\PROTEIN C\PROTEIN S HUMAN\PROTHROMBIN
     Indication: CEREBELLAR HAEMORRHAGE
     Dosage: 1800 INTERNATIONAL UNIT, SINGLE
     Route: 065
     Dates: start: 20181225, end: 20181225

REACTIONS (2)
  - Pneumonia aspiration [Fatal]
  - Cardiac failure [Fatal]

NARRATIVE: CASE EVENT DATE: 20181225
